FAERS Safety Report 7153001-7 (Version None)
Quarter: 2010Q4

REPORT INFORMATION
  Report Type: 
  Country: None (occurrence: None)
  Receive Date: 20101213
  Receipt Date: 20101130
  Transmission Date: 20110411
  Serious: Yes (Hospitalization, Other)
  Sender: FDA-Public Use
  Company Number: US-ELI_LILLY_AND_COMPANY-US201011006055

PATIENT
  Sex: Female

DRUGS (3)
  1. FORTEO [Suspect]
     Indication: OSTEOPOROSIS
     Dosage: 20 UG, DAILY (1/D)
     Route: 058
     Dates: end: 20101102
  2. CALCIUM [Concomitant]
  3. IRON [Concomitant]

REACTIONS (6)
  - ARTHROPATHY [None]
  - CELLULITIS [None]
  - FALL [None]
  - FEMUR FRACTURE [None]
  - FRACTURED SACRUM [None]
  - PELVIC FRACTURE [None]
